FAERS Safety Report 20173212 (Version 1)
Quarter: 2021Q4

REPORT INFORMATION
  Report Type: Spontaneous
  Country: US (occurrence: US)
  Receive Date: 20211211
  Receipt Date: 20211211
  Transmission Date: 20220303
  Serious: Yes (Other)
  Sender: FDA-Public Use
  Company Number: US-NOVARTISPH-NVSC2021US278825

PATIENT
  Age: 68 Year
  Sex: Male

DRUGS (4)
  1. DOCETAXEL [Suspect]
     Active Substance: DOCETAXEL
     Indication: Prostate cancer metastatic
     Dosage: UNK
     Route: 065
     Dates: start: 202009, end: 202103
  2. DOCETAXEL [Suspect]
     Active Substance: DOCETAXEL
     Indication: Hormone-refractory prostate cancer
  3. SIPULEUCEL-T [Concomitant]
     Active Substance: SIPULEUCEL-T
     Indication: Prostate cancer metastatic
     Dosage: UNK
     Route: 065
     Dates: start: 201803
  4. SIPULEUCEL-T [Concomitant]
     Active Substance: SIPULEUCEL-T
     Indication: Hormone-refractory prostate cancer

REACTIONS (8)
  - Autoimmune neuropathy [Unknown]
  - Hormone-refractory prostate cancer [Unknown]
  - Prostate cancer metastatic [Unknown]
  - Malignant neoplasm progression [Unknown]
  - Metastases to bone [Unknown]
  - Abdominal mass [Unknown]
  - Pulmonary mass [Unknown]
  - Pelvic mass [Unknown]
